FAERS Safety Report 6218410-9 (Version None)
Quarter: 2009Q2

REPORT INFORMATION
  Report Type: 
  Country: None (occurrence: None)
  Receive Date: 20090608
  Receipt Date: 20090529
  Transmission Date: 20091009
  Serious: Yes (Other)
  Sender: FDA-Public Use
  Company Number: A0788953A

PATIENT
  Sex: Female

DRUGS (3)
  1. SERETIDE [Suspect]
     Indication: ASTHMA
     Dosage: 1PUFF TWICE PER DAY
     Route: 055
     Dates: start: 20080901
  2. BEROTEC [Concomitant]
     Dosage: 3DROP TWICE PER DAY
     Dates: start: 20080901
  3. ATROVENT [Concomitant]
     Dosage: 20DROP TWICE PER DAY
     Dates: start: 20080901

REACTIONS (3)
  - ASTHMATIC CRISIS [None]
  - DRUG ADMINISTRATION ERROR [None]
  - DRUG INEFFECTIVE [None]
